FAERS Safety Report 8935267 (Version 2)
Quarter: 2013Q1

REPORT INFORMATION
  Report Type: Spontaneous
  Country: FR (occurrence: FR)
  Receive Date: 20121129
  Receipt Date: 20130220
  Transmission Date: 20140127
  Serious: Yes (Hospitalization, Disabling)
  Sender: FDA-Public Use
  Company Number: FR-ASTRAZENECA-2012SE88131

PATIENT
  Age: 28877 Day
  Sex: Female

DRUGS (3)
  1. ARIMIDEX [Suspect]
     Indication: BREAST NEOPLASM
     Route: 048
     Dates: end: 20120725
  2. KARDEGIC [Concomitant]
     Indication: PROPHYLAXIS
     Route: 048
  3. KARDEGIC [Concomitant]
     Indication: PROPHYLAXIS
     Route: 048

REACTIONS (7)
  - Cerebrovascular accident [Unknown]
  - Atrial fibrillation [Recovered/Resolved with Sequelae]
  - Carotid artery occlusion [Unknown]
  - Respiratory failure [Unknown]
  - Tricuspid valve stenosis [Unknown]
  - Mitral valve incompetence [Unknown]
  - Lung disorder [Unknown]
